FAERS Safety Report 9520109 (Version 1)
Quarter: 2013Q3

REPORT INFORMATION
  Report Type: Spontaneous
  Country: MX (occurrence: MX)
  Receive Date: 20130912
  Receipt Date: 20130912
  Transmission Date: 20140515
  Serious: Yes (Other)
  Sender: FDA-Public Use
  Company Number: PHHY2013MX100893

PATIENT
  Age: 61 Year
  Sex: Male

DRUGS (2)
  1. EXFORGE [Suspect]
     Indication: HYPERTENSION
     Dosage: 1 DF (160/10 MG), DAILY
     Route: 048
     Dates: start: 201207, end: 201304
  2. GENTEAL LUBRICANT [Concomitant]
     Indication: DRY EYE
     Dosage: 1 (UKN) GEL AND 6 OR 7 DROPS

REACTIONS (2)
  - Cataract [Unknown]
  - Keratoconus [Not Recovered/Not Resolved]
